FAERS Safety Report 9752535 (Version 1)
Quarter: 2013Q4

REPORT INFORMATION
  Report Type: Report from Study
  Country: CA (occurrence: CA)
  Receive Date: 20131213
  Receipt Date: 20131213
  Transmission Date: 20140711
  Serious: Yes (Hospitalization)
  Sender: FDA-Public Use
  Company Number: CA-JNJFOC-20131205078

PATIENT
  Age: 27 Year
  Sex: Female
  Weight: 55.9 kg

DRUGS (5)
  1. REMICADE [Suspect]
     Indication: CROHN^S DISEASE
     Route: 042
     Dates: start: 20111013
  2. PREDNISONE [Concomitant]
     Route: 065
  3. VITAMIN D [Concomitant]
     Route: 065
  4. CALCIUM [Concomitant]
     Route: 065
  5. PANTOLOC [Concomitant]
     Route: 065

REACTIONS (2)
  - Kidney infection [Recovered/Resolved]
  - Infarction [Recovered/Resolved]
